FAERS Safety Report 9432044 (Version 1)
Quarter: 2013Q3

REPORT INFORMATION
  Report Type: Spontaneous
  Country: US (occurrence: US)
  Receive Date: 20130731
  Receipt Date: 20130731
  Transmission Date: 20140515
  Serious: Yes (Other)
  Sender: FDA-Public Use
  Company Number: US-TEVA-422085USA

PATIENT
  Age: 27 Year
  Sex: Female

DRUGS (1)
  1. COPAXONE [Suspect]
     Indication: MULTIPLE SCLEROSIS
     Dates: start: 20130725

REACTIONS (7)
  - Convulsion [Recovered/Resolved]
  - Dizziness [Unknown]
  - Presyncope [Recovered/Resolved]
  - Confusional state [Unknown]
  - Cold sweat [Unknown]
  - Hyperhidrosis [Unknown]
  - Immediate post-injection reaction [Unknown]
